FAERS Safety Report 6642511-4 (Version None)
Quarter: 2010Q1

REPORT INFORMATION
  Report Type: 
  Country: None (occurrence: None)
  Receive Date: 20100316
  Receipt Date: 20100301
  Transmission Date: 20100710
  Serious: Yes (Hospitalization)
  Sender: FDA-Public Use
  Company Number: 2009003783

PATIENT
  Age: 58 Year
  Sex: Male

DRUGS (7)
  1. ERLOTINIB HYDROCHLORIDE [Suspect]
     Indication: LUNG NEOPLASM MALIGNANT
     Dosage: (QD), ORAL
     Route: 048
     Dates: start: 20091105
  2. CARBOPLATIN [Suspect]
     Indication: LUNG NEOPLASM MALIGNANT
     Dosage: (700 MG), INTRAVENOUS
     Route: 042
     Dates: start: 20091013, end: 20091125
  3. GEMCITABINE [Suspect]
     Indication: LUNG NEOPLASM MALIGNANT
     Dosage: (2 GM), INTRAVENOUS
     Route: 042
     Dates: start: 20091013, end: 20091125
  4. MULTI-VITAMIN [Concomitant]
  5. FERROUS SULFATE TAB [Concomitant]
  6. IPRATROPIUM BROMIDE [Concomitant]
  7. METOCLOPRAMIDE (METOCLOPRAMIDE) [Concomitant]

REACTIONS (4)
  - ANAEMIA [None]
  - DECREASED APPETITE [None]
  - DYSPHAGIA [None]
  - STOMATITIS [None]
